FAERS Safety Report 12567022 (Version 2)
Quarter: 2016Q3

REPORT INFORMATION
  Report Type: Spontaneous
  Country: HR (occurrence: HR)
  Receive Date: 20160718
  Receipt Date: 20160726
  Transmission Date: 20161109
  Serious: Yes (Other)
  Sender: FDA-Public Use
  Company Number: PHHY2016HR096651

PATIENT
  Sex: Male

DRUGS (7)
  1. SEROXAT [Suspect]
     Active Substance: PAROXETINE HYDROCHLORIDE
     Indication: PRODUCT USED FOR UNKNOWN INDICATION
     Dosage: 20 MG, (27TABLET)
     Route: 048
     Dates: start: 20160111, end: 20160111
  2. DULOXETINE. [Suspect]
     Active Substance: DULOXETINE
     Indication: PRODUCT USED FOR UNKNOWN INDICATION
     Dosage: 60 MG, (17 TABLETS)
     Route: 048
     Dates: start: 20160111, end: 20160111
  3. MODITEN [Suspect]
     Active Substance: FLUPHENAZINE HYDROCHLORIDE
     Indication: PRODUCT USED FOR UNKNOWN INDICATION
     Dosage: 2.5 MG,(37 TABLETS)
     Route: 048
     Dates: start: 20160111, end: 20160111
  4. TEGRETOL [Suspect]
     Active Substance: CARBAMAZEPINE
     Indication: PRODUCT USED FOR UNKNOWN INDICATION
     Dosage: 200 MG,(43 TABLETS)
     Route: 048
     Dates: start: 20160111, end: 20160111
  5. APAURIN [Suspect]
     Active Substance: DIAZEPAM
     Indication: PRODUCT USED FOR UNKNOWN INDICATION
     Dosage: 5 MG,(20 TABLETS)
     Route: 048
     Dates: start: 20160111, end: 20160111
  6. SEROQUEL [Suspect]
     Active Substance: QUETIAPINE FUMARATE
     Indication: PRODUCT USED FOR UNKNOWN INDICATION
     Dosage: 400 MG, (37 TABLETS)
     Route: 048
     Dates: start: 20160111, end: 20160111
  7. LEPONEX / CLOZARIL (CLOZAPINE) [Suspect]
     Active Substance: CLOZAPINE
     Indication: PRODUCT USED FOR UNKNOWN INDICATION
     Dosage: 25 MG, (55 TABLETS)
     Route: 048
     Dates: start: 20160111, end: 20160111

REACTIONS (3)
  - Loss of consciousness [Unknown]
  - Suicide attempt [Unknown]
  - Respiratory failure [Unknown]

NARRATIVE: CASE EVENT DATE: 20160111
